FAERS Safety Report 8831045 (Version 1)
Quarter: 2012Q4

REPORT INFORMATION
  Report Type: 
  Country: US (occurrence: US)
  Receive Date: 20121009
  Receipt Date: 20121009
  Transmission Date: 20130627
  Serious: Yes (Other)
  Sender: FDA-Public Use
  Company Number: US-PFIZER INC-2012244550

PATIENT
  Sex: Female

DRUGS (1)
  1. ESTROGENS, CONJUGATED AND MEDROXYPROGESTERONE ACETATE [Suspect]
     Dosage: UNK
     Dates: start: 2012

REACTIONS (4)
  - Thyroid function test abnormal [Unknown]
  - Drug ineffective [Unknown]
  - Feeling abnormal [Unknown]
  - Unevaluable event [None]
